FAERS Safety Report 10901724 (Version 1)
Quarter: 2015Q1

REPORT INFORMATION
  Report Type: Spontaneous
  Country: US (occurrence: US)
  Receive Date: 20150310
  Receipt Date: 20150310
  Transmission Date: 20150721
  Serious: Yes (Other)
  Sender: FDA-Public Use
  Company Number: US-BAYER-2015-030922

PATIENT
  Age: 68 Year
  Sex: Male
  Weight: 85.71 kg

DRUGS (1)
  1. STIVARGA [Suspect]
     Active Substance: REGORAFENIB
     Indication: RECTAL CANCER
     Dosage: DAILY DOSE 160 MG
     Route: 048
     Dates: start: 20140628, end: 20140725

REACTIONS (3)
  - Blister [None]
  - Tongue blistering [None]
  - Blister infected [None]

NARRATIVE: CASE EVENT DATE: 20140724
